FAERS Safety Report 8979124 (Version 2)
Quarter: 2013Q1

REPORT INFORMATION
  Report Type: Spontaneous
  Country: US (occurrence: US)
  Receive Date: 20121221
  Receipt Date: 20130124
  Transmission Date: 20140127
  Serious: Yes (Other)
  Sender: FDA-Public Use
  Company Number: US-PFIZER INC-2012320234

PATIENT
  Sex: Female

DRUGS (1)
  1. ESTRING [Suspect]
     Indication: UROGENITAL ATROPHY
     Dosage: UNK

REACTIONS (5)
  - Product quality issue [Unknown]
  - Vaginal haemorrhage [Unknown]
  - Vaginal laceration [Unknown]
  - Vulvovaginal pain [Unknown]
  - Vulvovaginal discomfort [Unknown]
